FAERS Safety Report 8575554-4 (Version None)
Quarter: 2012Q3

REPORT INFORMATION
  Report Type: 
  Country: None (occurrence: None)
  Receive Date: 20120807
  Receipt Date: 20120731
  Transmission Date: 20120928
  Serious: Yes (Hospitalization)
  Sender: FDA-Public Use
  Company Number: JP-EISAI INC-E7389-01524-SPO-JP

PATIENT
  Sex: Female
  Weight: 64 kg

DRUGS (18)
  1. LOXONIN [Concomitant]
     Route: 048
  2. DECADRON PHOSPHATE [Concomitant]
     Dates: end: 20110906
  3. METFORMIN HCL [Concomitant]
     Route: 048
  4. OXYCONTIN [Concomitant]
     Route: 048
  5. SELBEX [Concomitant]
     Indication: PROPHYLAXIS
     Route: 048
  6. ALOSENN [Concomitant]
     Indication: PROPHYLAXIS
     Route: 048
  7. NATEGLINIDE [Concomitant]
     Indication: PROPHYLAXIS
     Route: 048
  8. AMOBAN [Concomitant]
     Route: 048
  9. FAMOTIDINE [Concomitant]
     Indication: PROPHYLAXIS
     Route: 048
  10. HALAVEN [Suspect]
     Indication: BREAST CANCER RECURRENT
     Route: 041
     Dates: start: 20110805, end: 20111014
  11. OXYCODONE HCL [Concomitant]
     Route: 048
  12. JANUVIA [Concomitant]
     Route: 048
  13. LIPIDIL [Concomitant]
     Indication: PROPHYLAXIS
     Route: 048
  14. LANTUS [Concomitant]
     Route: 042
  15. AMARYL [Concomitant]
     Route: 048
  16. CIPROFLOXACIN HCL [Concomitant]
     Indication: PROPHYLAXIS
     Route: 048
  17. HALAVEN [Suspect]
     Indication: METASTASES TO LUNG
     Route: 041
     Dates: start: 20111028
  18. HALCION [Concomitant]
     Route: 048

REACTIONS (3)
  - HYPERGLYCAEMIA [None]
  - GAIT DISTURBANCE [None]
  - DIABETES MELLITUS [None]
